FAERS Safety Report 11122156 (Version 2)
Quarter: 2015Q3

REPORT INFORMATION
  Report Type: Report from Study
  Country: US (occurrence: US)
  Receive Date: 20150519
  Receipt Date: 20150810
  Transmission Date: 20151125
  Serious: Yes (Hospitalization)
  Sender: FDA-Public Use
  Company Number: US-SA-2013SA128116

PATIENT
  Age: 36 Year
  Sex: Female

DRUGS (3)
  1. AUBAGIO [Suspect]
     Active Substance: TERIFLUNOMIDE
     Indication: MULTIPLE SCLEROSIS
     Route: 048
     Dates: start: 20130926
  2. AUBAGIO [Suspect]
     Active Substance: TERIFLUNOMIDE
     Indication: MULTIPLE SCLEROSIS
     Route: 048
     Dates: start: 20131017
  3. AMPYRA [Concomitant]
     Active Substance: DALFAMPRIDINE
     Indication: MULTIPLE SCLEROSIS
     Dates: start: 20140801

REACTIONS (22)
  - Fatigue [Unknown]
  - Rash [Not Recovered/Not Resolved]
  - Weight decreased [Unknown]
  - Gait disturbance [Unknown]
  - Nasopharyngitis [Not Recovered/Not Resolved]
  - Skin wrinkling [Recovering/Resolving]
  - Visual impairment [Not Recovered/Not Resolved]
  - Dysgeusia [Not Recovered/Not Resolved]
  - Balance disorder [Not Recovered/Not Resolved]
  - Blister [Recovered/Resolved]
  - Blood potassium decreased [Recovering/Resolving]
  - Malaise [Unknown]
  - Chest discomfort [Recovering/Resolving]
  - Contusion [Unknown]
  - Decreased appetite [Not Recovered/Not Resolved]
  - Hypoaesthesia [Recovering/Resolving]
  - Gait disturbance [Recovering/Resolving]
  - Tremor [Recovering/Resolving]
  - Hypoaesthesia [Recovering/Resolving]
  - Gait disturbance [Not Recovered/Not Resolved]
  - Fall [Unknown]
  - Food aversion [Not Recovered/Not Resolved]

NARRATIVE: CASE EVENT DATE: 20131128
